FAERS Safety Report 4873353-8 (Version None)
Quarter: 2006Q1

REPORT INFORMATION
  Report Type: 
  Country: None (occurrence: None)
  Receive Date: 20060105
  Receipt Date: 20051221
  Transmission Date: 20060701
  Serious: Yes (Hospitalization)
  Sender: FDA-Public Use
  Company Number: FR-ROCHE-429541

PATIENT
  Age: 73 Year
  Sex: Male

DRUGS (1)
  1. ROCEPHIN [Suspect]
     Indication: DRUG USE FOR UNKNOWN INDICATION
     Route: 030
     Dates: start: 20050913, end: 20051101

REACTIONS (4)
  - DERMATITIS BULLOUS [None]
  - DRUG ERUPTION [None]
  - SKIN EXFOLIATION [None]
  - STOMATITIS [None]
